FAERS Safety Report 10516635 (Version 1)
Quarter: 2014Q4

REPORT INFORMATION
  Report Type: Report from Study
  Country: LB (occurrence: LB)
  Receive Date: 20141014
  Receipt Date: 20141014
  Transmission Date: 20150528
  Serious: Yes (Hospitalization, Other)
  Sender: FDA-Public Use
  Company Number: LB-SA-2014SA138092

PATIENT
  Age: 70 Year
  Sex: Female

DRUGS (16)
  1. LOPID [Concomitant]
     Active Substance: GEMFIBROZIL
     Route: 048
  2. SINEMET [Concomitant]
     Active Substance: CARBIDOPA\LEVODOPA
     Route: 048
  3. PRAXILENE [Concomitant]
     Active Substance: NAFRONYL
     Route: 048
  4. URIDINE TRIPHOSPHATE [Concomitant]
     Route: 048
  5. IRON [Concomitant]
     Active Substance: IRON
     Route: 048
  6. EXELON [Concomitant]
     Active Substance: RIVASTIGMINE TARTRATE
     Route: 048
  7. OSSOPAN [Concomitant]
     Route: 048
  8. NORMAL SALINE [Concomitant]
     Active Substance: SODIUM CHLORIDE
     Indication: DECUBITUS ULCER
     Route: 048
  9. SOLOSTAR [Concomitant]
     Active Substance: DEVICE
     Dates: start: 201211
  10. NOVORAPID [Concomitant]
     Active Substance: INSULIN ASPART
     Indication: DIABETES MELLITUS
     Dosage: ACCORDING TO HGT
     Route: 058
  11. FOSAVANCE [Concomitant]
     Active Substance: ALENDRONATE SODIUM\CHOLECALCIFEROL
     Route: 048
  12. AMLOR [Concomitant]
     Active Substance: AMLODIPINE BESYLATE
     Route: 048
  13. MAGNESIUM [Concomitant]
     Active Substance: MAGNESIUM
     Route: 048
  14. CONCOR [Concomitant]
     Active Substance: BISOPROLOL FUMARATE
     Route: 048
  15. LANTUS SOLOSTAR [Suspect]
     Active Substance: INSULIN GLARGINE
     Indication: DIABETES MELLITUS
     Dosage: DOSE:12 UNIT(S)
     Route: 058
     Dates: start: 201211
  16. BECOZYME [Concomitant]
     Route: 048

REACTIONS (8)
  - Somnolence [Unknown]
  - Fall [Unknown]
  - Hip fracture [Unknown]
  - Hyperglycaemia [Unknown]
  - Pyrexia [Not Recovered/Not Resolved]
  - Infection [Unknown]
  - Decubitus ulcer [Recovering/Resolving]
  - Bedridden [Unknown]

NARRATIVE: CASE EVENT DATE: 2013
